FAERS Safety Report 15029646 (Version 1)
Quarter: 2018Q2

REPORT INFORMATION
  Report Type: Spontaneous
  Country: GB (occurrence: GB)
  Receive Date: 20180619
  Receipt Date: 20180619
  Transmission Date: 20180711
  Serious: Yes (Hospitalization)
  Sender: FDA-Public Use
  Company Number: GB-TEVA-2018-GB-909214

PATIENT
  Age: 97 Year
  Sex: Female

DRUGS (7)
  1. ALFACALCIDOL [Concomitant]
     Active Substance: ALFACALCIDOL
     Route: 065
  2. OXYCODONE [Concomitant]
     Active Substance: OXYCODONE
     Dosage: 20 MILLIGRAM DAILY;
     Route: 048
  3. PARACETAMOL [Concomitant]
     Active Substance: ACETAMINOPHEN
     Route: 065
  4. WARFARIN [Concomitant]
     Active Substance: WARFARIN
     Route: 065
  5. LAXIDO [Concomitant]
     Active Substance: POLYETHYLENE GLYCOL 3350\POTASSIUM CHLORIDE\SODIUM BICARBONATE\SODIUM CHLORIDE
     Route: 048
  6. BISOPROLOL [Concomitant]
     Active Substance: BISOPROLOL
     Dosage: 3.75 MILLIGRAM DAILY; MORNING
     Route: 048
  7. BUMETANIDE. [Suspect]
     Active Substance: BUMETANIDE
     Dosage: 2 MILLIGRAM DAILY;
     Route: 048

REACTIONS (3)
  - Mobility decreased [Unknown]
  - Skin ulcer [Unknown]
  - Acute kidney injury [Recovered/Resolved]
